FAERS Safety Report 10684609 (Version 1)
Quarter: 2014Q4

REPORT INFORMATION
  Report Type: Report from Study
  Country: IT (occurrence: IT)
  Receive Date: 20141231
  Receipt Date: 20141231
  Transmission Date: 20150529
  Serious: Yes (Death)
  Sender: FDA-Public Use
  Company Number: IT-EMCURE-000798

PATIENT

DRUGS (5)
  1. CARMUSTINE [Suspect]
     Active Substance: CARMUSTINE
     Indication: HODGKIN^S DISEASE
     Dosage: CARMUSTINE 100 MG/M^2 IV DAY 1 FOR EVERY 42 DAYS FOR A MAXIMUM OF 6?CYCLES
     Route: 042
  2. PREDNISONE. [Suspect]
     Active Substance: PREDNISONE
     Indication: HODGKIN^S DISEASE
     Dosage: PREDNISONE 60 MG/M^2 DAY 1-10 PO FOR EVERY 42 DAYS FOR A MAXIMUM OF 6?CYCLES
     Route: 048
  3. CYCLOPHOSPHAMIDE/CYCLOPHOSPHAMIDE MONOHYDRATE [Suspect]
     Active Substance: CYCLOPHOSPHAMIDE
     Indication: HODGKIN^S DISEASE
     Dosage: CYCLOPHOSPHAMIDE 600 MG/M^2 IV DAY 1 FOR EVERY 42 DAYS FOR A MAXIMUM OF 6?CYCLES
     Route: 042
  4. PROCARBAZINE [Suspect]
     Active Substance: PROCARBAZINE
     Indication: HODGKIN^S DISEASE
     Dosage: PROCARBAZINE 100 MG/M^2 DAY 1-10 PO FOR EVERY 42 DAYS FOR A MAXIMUM OF 6?CYCLES
     Route: 048
  5. VINBLASTINE [Suspect]
     Active Substance: VINBLASTINE
     Indication: HODGKIN^S DISEASE
     Dosage: VINBLASTINE 5 MG/M^2 IV DAY 1 FOR EVERY 42 DAYS FOR A MAXIMUM OF 6 CYCLES
     Route: 042

REACTIONS (1)
  - Pneumonia [Fatal]
